FAERS Safety Report 7918425-6 (Version None)
Quarter: 2011Q4

REPORT INFORMATION
  Report Type: 
  Country: None (occurrence: None)
  Receive Date: 20111116
  Receipt Date: 20111114
  Transmission Date: 20120403
  Serious: Yes (Hospitalization, Congenital Anomaly, Other)
  Sender: FDA-Public Use
  Company Number: US-TEVA-255679USA

PATIENT
  Sex: Female

DRUGS (1)
  1. CLARAVIS [Suspect]
     Dosage: 40 MILLIGRAM;
     Route: 064
     Dates: start: 20091106, end: 20100110

REACTIONS (3)
  - DYSPNOEA [None]
  - JAUNDICE NEONATAL [None]
  - MICROCEPHALY [None]
